FAERS Safety Report 7382672-5 (Version None)
Quarter: 2011Q1

REPORT INFORMATION
  Report Type: 
  Country: None (occurrence: None)
  Receive Date: 20110329
  Receipt Date: 20110323
  Transmission Date: 20110831
  Serious: Yes (Other)
  Sender: FDA-Public Use
  Company Number: AU-AMGEN-AUSSP2011006766

PATIENT
  Sex: Female

DRUGS (11)
  1. ENBREL [Suspect]
     Indication: PSORIASIS
  2. LEFLUNOMIDE [Concomitant]
     Dosage: 10 MG, 1X/DAY
  3. FEXOFENADINE HCL [Concomitant]
     Dosage: UNK
  4. FOLIC ACID [Concomitant]
     Dosage: 1 MG, 1X/DAY
  5. DIANE [Concomitant]
     Dosage: UNK
  6. PREDNISONE [Concomitant]
  7. METHOTREXATE [Concomitant]
     Dosage: 10 MG, WEEKLY
  8. ENBREL [Suspect]
     Indication: PSORIATIC ARTHROPATHY
     Dosage: 50 MG, UNK
     Route: 058
  9. VOLTAREN [Concomitant]
     Dosage: UNK
  10. LOVAZA [Concomitant]
     Dosage: UNK
  11. FLUVAX                             /00027001/ [Concomitant]
     Dosage: UNK

REACTIONS (2)
  - INJECTION SITE REACTION [None]
  - UPPER RESPIRATORY TRACT INFECTION [None]
